FAERS Safety Report 13735445 (Version 1)
Quarter: 2017Q3

REPORT INFORMATION
  Report Type: Spontaneous
  Country: US (occurrence: US)
  Receive Date: 20170710
  Receipt Date: 20170710
  Transmission Date: 20171127
  Serious: No
  Sender: FDA-Public Use
  Company Number: US-PFIZER INC-2017296171

PATIENT
  Age: 48 Year
  Sex: Male
  Weight: 92.8 kg

DRUGS (1)
  1. VIAGRA [Suspect]
     Active Substance: SILDENAFIL CITRATE
     Dosage: 25 MG, UNK
     Dates: start: 20170317

REACTIONS (2)
  - Ejaculation disorder [Unknown]
  - Erection increased [Unknown]
